FAERS Safety Report 7527285-7 (Version None)
Quarter: 2011Q2

REPORT INFORMATION
  Report Type: 
  Country: None (occurrence: None)
  Receive Date: 20110603
  Receipt Date: 20110603
  Transmission Date: 20111010
  Serious: Yes (Hospitalization)
  Sender: FDA-Public Use
  Company Number: None

PATIENT
  Age: 70 Year
  Sex: Female
  Weight: 60.3284 kg

DRUGS (1)
  1. LISINOPRL 40 MG, LUPIN [Suspect]
     Indication: HYPERTENSION
     Dosage: 1 TABLET 1 PER DAY
     Dates: start: 20090101, end: 20110301

REACTIONS (2)
  - SWOLLEN TONGUE [None]
  - NO THERAPEUTIC RESPONSE [None]
